FAERS Safety Report 18728047 (Version 1)
Quarter: 2021Q1

REPORT INFORMATION
  Report Type: Report from Study
  Country: CA (occurrence: CA)
  Receive Date: 20210112
  Receipt Date: 20210112
  Transmission Date: 20210419
  Serious: Yes (Other)
  Sender: FDA-Public Use
  Company Number: CA-ORION CORPORATION ORION PHARMA-21_00012568

PATIENT
  Age: 86 Year
  Sex: Female

DRUGS (7)
  1. FOLIC ACID. [Concomitant]
     Active Substance: FOLIC ACID
     Route: 048
  2. IBUPROFEN. [Concomitant]
     Active Substance: IBUPROFEN
     Route: 048
  3. ETANERCEPT [Suspect]
     Active Substance: ETANERCEPT
     Route: 058
  4. ETANERCEPT [Suspect]
     Active Substance: ETANERCEPT
     Indication: RHEUMATOID ARTHRITIS
     Route: 058
  5. CELEBREX [Concomitant]
     Active Substance: CELECOXIB
     Route: 048
  6. METHOTREXATE (TRADE NAME UNKNOWN) [Suspect]
     Active Substance: METHOTREXATE
     Indication: PRODUCT USED FOR UNKNOWN INDICATION
     Route: 048
  7. ETANERCEPT [Suspect]
     Active Substance: ETANERCEPT
     Route: 058

REACTIONS (7)
  - Drug ineffective [Unknown]
  - Rheumatoid arthritis [Unknown]
  - Body temperature decreased [Unknown]
  - Arthralgia [Unknown]
  - Pain in extremity [Unknown]
  - Blood pressure diastolic increased [Unknown]
  - Grip strength decreased [Unknown]
